FAERS Safety Report 9067703 (Version 2)
Quarter: 2013Q1

REPORT INFORMATION
  Report Type: Spontaneous
  Country: FR (occurrence: FR)
  Receive Date: 20130128
  Receipt Date: 20130213
  Transmission Date: 20140127
  Serious: Yes (Hospitalization, Other)
  Sender: FDA-Public Use
  Company Number: FR-009507513-1301FRA011248

PATIENT
  Age: 36 None
  Sex: Female
  Weight: 53.6 kg

DRUGS (7)
  1. ISENTRESS [Suspect]
     Indication: HIV INFECTION
     Dosage: 400 MG, BID
     Route: 048
     Dates: start: 20120510, end: 20120618
  2. NORVIR [Concomitant]
     Indication: HIV INFECTION
     Dosage: 100 MG, QD
  3. REYATAZ [Concomitant]
     Indication: HIV INFECTION
     Dosage: 300 MG, QD
  4. VIREAD [Concomitant]
     Indication: HIV INFECTION
     Dosage: 1 DF, QD
  5. DALACINE [Concomitant]
     Dosage: 2 DF, TID
  6. MALOCIDE [Concomitant]
     Dosage: 1 DF, UNK
  7. LEDERFOLIN (LEUCOVORIN CALCIUM) [Concomitant]
     Route: 048

REACTIONS (5)
  - Drug-induced liver injury [Recovered/Resolved]
  - Drug reaction with eosinophilia and systemic symptoms [Recovering/Resolving]
  - Depression [Unknown]
  - Oesophageal candidiasis [Unknown]
  - Lung disorder [Recovered/Resolved]
